FAERS Safety Report 6986581-2 (Version None)
Quarter: 2010Q3

REPORT INFORMATION
  Report Type: 
  Country: None (occurrence: None)
  Receive Date: 20100915
  Receipt Date: 20090717
  Transmission Date: 20110219
  Serious: Yes (Other)
  Sender: FDA-Public Use
  Company Number: US-WYE-H10195609

PATIENT
  Sex: Female
  Weight: 86.26 kg

DRUGS (2)
  1. PRISTIQ [Suspect]
     Indication: DEPRESSION
     Route: 048
     Dates: start: 20090401
  2. ALBUTEROL [Concomitant]
     Indication: BRONCHITIS
     Dosage: AS NEEDED
     Route: 055

REACTIONS (3)
  - BLOOD PRESSURE INCREASED [None]
  - HEADACHE [None]
  - INTENTIONAL DRUG MISUSE [None]
